FAERS Safety Report 25124650 (Version 2)
Quarter: 2025Q2

REPORT INFORMATION
  Report Type: Spontaneous
  Country: PT (occurrence: PT)
  Receive Date: 20250326
  Receipt Date: 20250401
  Transmission Date: 20250716
  Serious: Yes (Other)
  Sender: PFIZER
  Company Number: PT-MLMSERVICE-20250318-PI443028-00270-1

PATIENT
  Age: 47 Year
  Sex: Male

DRUGS (14)
  1. METHYLPREDNISOLONE [Suspect]
     Active Substance: METHYLPREDNISOLONE
     Indication: Takayasu^s arteritis
     Dosage: 1 G, 1X/DAY IN THE FIRST 3 DAYS
  2. METHYLPREDNISOLONE [Suspect]
     Active Substance: METHYLPREDNISOLONE
     Indication: Renovascular hypertension
  3. PREDNISOLONE [Suspect]
     Active Substance: PREDNISOLONE
     Indication: Takayasu^s arteritis
     Dosage: 40 MG, 1X/DAY
  4. PREDNISOLONE [Suspect]
     Active Substance: PREDNISOLONE
     Indication: Renovascular hypertension
  5. AMLODIPINE [Concomitant]
     Active Substance: AMLODIPINE BESYLATE
     Indication: Polyarteritis nodosa
     Dosage: 10 MG, 1X/DAY
  6. AMLODIPINE [Concomitant]
     Active Substance: AMLODIPINE BESYLATE
     Indication: Takayasu^s arteritis
  7. AMLODIPINE [Concomitant]
     Active Substance: AMLODIPINE BESYLATE
     Indication: Renovascular hypertension
  8. CYCLOPHOSPHAMIDE [Concomitant]
     Active Substance: CYCLOPHOSPHAMIDE
     Indication: Polyarteritis nodosa
     Dosage: 1 G, EVERY 3 WEEKS
  9. LISINOPRIL [Concomitant]
     Active Substance: LISINOPRIL
     Indication: Polyarteritis nodosa
     Dosage: 5 MG, 1X/DAY
  10. LISINOPRIL [Concomitant]
     Active Substance: LISINOPRIL
     Indication: Takayasu^s arteritis
  11. LISINOPRIL [Concomitant]
     Active Substance: LISINOPRIL
     Indication: Renovascular hypertension
  12. NEBIVOLOL [Concomitant]
     Active Substance: NEBIVOLOL
     Indication: Polyarteritis nodosa
     Dosage: 5 MG, 1X/DAY
  13. NEBIVOLOL [Concomitant]
     Active Substance: NEBIVOLOL
     Indication: Takayasu^s arteritis
  14. NEBIVOLOL [Concomitant]
     Active Substance: NEBIVOLOL
     Indication: Renovascular hypertension

REACTIONS (4)
  - Weight increased [Unknown]
  - Blood pressure inadequately controlled [Unknown]
  - Off label use [Unknown]
  - Drug ineffective for unapproved indication [Unknown]
